FAERS Safety Report 4735851-7 (Version None)
Quarter: 2005Q3

REPORT INFORMATION
  Report Type: 
  Country: None (occurrence: None)
  Receive Date: 20050804
  Receipt Date: 20050804
  Transmission Date: 20060218
  Serious: No
  Sender: FDA-Public Use
  Company Number: None

PATIENT
  Age: 62 Year
  Sex: Female
  Weight: 68.0396 kg

DRUGS (3)
  1. ARIMIDEX [Suspect]
     Indication: BREAST CANCER
     Dosage: 1 MG ONCE A DAY ORAL
     Route: 048
     Dates: start: 20050104, end: 20050628
  2. ARIMIDEX [Suspect]
     Indication: NEOPLASM RECURRENCE
     Dosage: 1 MG ONCE A DAY ORAL
     Route: 048
     Dates: start: 20050104, end: 20050628
  3. SYNTHROID [Concomitant]

REACTIONS (3)
  - ACTIVITIES OF DAILY LIVING IMPAIRED [None]
  - ARTHRALGIA [None]
  - MYALGIA [None]
